FAERS Safety Report 16379934 (Version 3)
Quarter: 2019Q2

REPORT INFORMATION
  Report Type: Spontaneous
  Country: JP (occurrence: JP)
  Receive Date: 20190531
  Receipt Date: 20190612
  Transmission Date: 20190711
  Serious: Yes (Hospitalization, Other)
  Sender: FDA-Public Use
  Company Number: JP-009507513-1905JPN013000

PATIENT
  Age: 49 Year
  Sex: Female
  Weight: 45 kg

DRUGS (5)
  1. MIRTAZAPINE. [Suspect]
     Active Substance: MIRTAZAPINE
     Dosage: 1950 MG, ONCE
     Route: 048
  2. BORIC ACID [Suspect]
     Active Substance: BORIC ACID
     Dosage: UNK, ONCE
     Route: 048
  3. SENNOSIDES. [Suspect]
     Active Substance: SENNOSIDES
     Dosage: 780 MILLIGRAM, ONCE
     Route: 048
  4. MIRTAZAPINE. [Suspect]
     Active Substance: MIRTAZAPINE
     Dosage: 15 MILLIGRAM
     Route: 048
  5. SENNOSIDES. [Suspect]
     Active Substance: SENNOSIDES
     Dosage: 12 MILLIGRAM
     Route: 048

REACTIONS (2)
  - Cardiac arrest [Recovered/Resolved]
  - Intentional overdose [Unknown]
